FAERS Safety Report 5230259-2 (Version None)
Quarter: 2007Q1

REPORT INFORMATION
  Report Type: 
  Country: None (occurrence: None)
  Receive Date: 20070206
  Receipt Date: 20061026
  Transmission Date: 20070707
  Serious: No
  Sender: FDA-Public Use
  Company Number: US-GLAXOSMITHKLINE-A0625073A

PATIENT
  Age: 63 Year
  Sex: Male

DRUGS (11)
  1. PAXIL CR [Suspect]
     Indication: DEPRESSION
     Dosage: 12.5MG THREE TIMES PER DAY
     Route: 048
  2. ZANTAC [Concomitant]
  3. CELEBREX [Concomitant]
  4. LIPITOR [Concomitant]
  5. ALLEGRA [Concomitant]
  6. PLAVIX [Concomitant]
  7. TOPROL-XL [Concomitant]
  8. ALTACE [Concomitant]
  9. ASPIRIN [Concomitant]
  10. VICODIN [Concomitant]
  11. FLEXERIL [Concomitant]

REACTIONS (1)
  - DRUG INEFFECTIVE [None]
